FAERS Safety Report 17574801 (Version 2)
Quarter: 2020Q1

REPORT INFORMATION
  Report Type: Spontaneous
  Country: FR (occurrence: FR)
  Receive Date: 20200324
  Receipt Date: 20200326
  Transmission Date: 20200409
  Serious: Yes (Death, Hospitalization)
  Sender: FDA-Public Use
  Company Number: FR-TEVA-2020-FR-1207704

PATIENT
  Age: 83 Year
  Sex: Female
  Weight: 90 kg

DRUGS (13)
  1. DEXERYL, CREME EN TUBE [Concomitant]
     Route: 003
  2. CORDARONE [Concomitant]
     Active Substance: AMIODARONE HYDROCHLORIDE
     Dosage: 5 DF
     Route: 048
  3. PANTOPRAZOLE [Concomitant]
     Active Substance: PANTOPRAZOLE
     Dosage: 20 MG
     Route: 048
  4. COUMADINE 2 MG, COMPRIME SECABLE [Concomitant]
     Active Substance: WARFARIN SODIUM
     Dosage: 0.5 DOSAGE FORM
     Route: 048
  5. DIFFU K, GELULE [Concomitant]
     Active Substance: POTASSIUM CHLORIDE
     Dosage: 1 DF
     Route: 048
  6. CORTANCYL [Concomitant]
     Active Substance: PREDNISONE
     Dosage: 20 MG
     Route: 048
  7. CALCIDOSE VITAMINE D, POUDRE ORALE EN SACHET-DOSE [Concomitant]
     Active Substance: CALCIUM\CHOLECALCIFEROL
     Dosage: 2 DF
     Route: 048
  8. AUGMENTIN [Suspect]
     Active Substance: AMOXICILLIN\CLAVULANATE POTASSIUM
     Dosage: 3 GRAM
     Route: 048
     Dates: start: 20190715, end: 20190725
  9. AMOXICILLINE [Suspect]
     Active Substance: AMOXICILLIN
     Indication: INFECTION
     Route: 048
     Dates: start: 20190715, end: 20190725
  10. AUGMENTIN [Suspect]
     Active Substance: AMOXICILLIN\CLAVULANATE POTASSIUM
     Indication: INFECTION
     Dosage: 6 GRAM
     Route: 042
     Dates: start: 20190711, end: 20190715
  11. LEVOTHYROX 25 MICROGRAMMES, COMPRIM? S?CABLE [Concomitant]
     Active Substance: LEVOTHYROXINE SODIUM
     Dosage: 1 DF
     Route: 048
  12. PROPOFOL. [Concomitant]
     Active Substance: PROPOFOL
     Dosage: DOSAGE UNSPECIFIED
     Route: 065
  13. LASILIX [Concomitant]
     Active Substance: FUROSEMIDE
     Dosage: 20 MG
     Route: 048

REACTIONS (1)
  - Hepatitis acute [Fatal]

NARRATIVE: CASE EVENT DATE: 20190814
